FAERS Safety Report 7996698-1 (Version None)
Quarter: 2011Q4

REPORT INFORMATION
  Report Type: 
  Country: None (occurrence: None)
  Receive Date: 20111221
  Receipt Date: 20101222
  Transmission Date: 20120403
  Serious: Yes (Hospitalization, Disabling, Other)
  Sender: FDA-Public Use
  Company Number: US-GLAXOSMITHKLINE-A0901414A

PATIENT
  Age: 42 Year
  Sex: Male

DRUGS (2)
  1. ARRANON [Suspect]
     Indication: T-CELL TYPE ACUTE LEUKAEMIA
     Dosage: 1500MGM2 CYCLIC
     Route: 042
     Dates: start: 20100820, end: 20101101
  2. NO CONCURRENT MEDICATION [Concomitant]

REACTIONS (1)
  - PARALYSIS [None]
